FAERS Safety Report 11185193 (Version 4)
Quarter: 2015Q3

REPORT INFORMATION
  Report Type: Spontaneous
  Country: JP (occurrence: JP)
  Receive Date: 20150612
  Receipt Date: 20150710
  Transmission Date: 20151125
  Serious: Yes (Life-Threatening, Other)
  Sender: FDA-Public Use
  Company Number: JP-ASTRAZENECA-2015SE52179

PATIENT
  Age: 31430 Day
  Sex: Male
  Weight: 47 kg

DRUGS (16)
  1. DESYREL [Interacting]
     Active Substance: TRAZODONE HYDROCHLORIDE
     Indication: DEMENTIA
     Route: 048
     Dates: start: 20150414, end: 20150416
  2. YOKUKANSAN [Concomitant]
     Active Substance: HERBALS
     Dates: start: 20150417, end: 20150417
  3. DESYREL [Interacting]
     Active Substance: TRAZODONE HYDROCHLORIDE
     Indication: DELIRIUM
     Route: 048
     Dates: start: 20150417, end: 20150417
  4. DESYREL [Interacting]
     Active Substance: TRAZODONE HYDROCHLORIDE
     Indication: DEMENTIA
     Route: 048
     Dates: start: 20150417, end: 20150417
  5. TALION [Suspect]
     Active Substance: BEPOTASTINE
     Indication: RASH
     Route: 048
     Dates: start: 20150417, end: 20150417
  6. DONEPEZIL. [Concomitant]
     Active Substance: DONEPEZIL
     Dates: end: 20150417
  7. THYRADIN S [Concomitant]
     Active Substance: LEVOTHYROXINE SODIUM
     Dates: start: 20150417, end: 20150423
  8. SEROQUEL [Interacting]
     Active Substance: QUETIAPINE FUMARATE
     Indication: DELIRIUM
     Route: 048
     Dates: start: 20150414, end: 20150417
  9. DESYREL [Interacting]
     Active Substance: TRAZODONE HYDROCHLORIDE
     Indication: DELIRIUM
     Route: 048
     Dates: start: 20150414, end: 20150416
  10. SEROQUEL [Interacting]
     Active Substance: QUETIAPINE FUMARATE
     Indication: DEMENTIA
     Route: 048
     Dates: start: 20150414, end: 20150417
  11. DESYREL [Interacting]
     Active Substance: TRAZODONE HYDROCHLORIDE
     Indication: DEMENTIA
     Route: 048
     Dates: start: 20150425
  12. AMLODIPINE [Concomitant]
     Active Substance: AMLODIPINE BESYLATE
     Dates: end: 20150318
  13. BROTIZOLAM M [Concomitant]
     Active Substance: BROTIZOLAM
     Dates: start: 20150417
  14. DESYREL [Interacting]
     Active Substance: TRAZODONE HYDROCHLORIDE
     Indication: DELIRIUM
     Route: 048
     Dates: start: 20150425
  15. AMLODIPINE [Concomitant]
     Active Substance: AMLODIPINE BESYLATE
     Dates: start: 20150319, end: 20150407
  16. MOSAPRIDE CITRATE [Concomitant]
     Active Substance: MOSAPRIDE CITRATE
     Dates: start: 20150417, end: 20150417

REACTIONS (5)
  - Rash [Unknown]
  - Off label use [Unknown]
  - Drug interaction [Unknown]
  - Hypothermia [Recovered/Resolved]
  - Circadian rhythm sleep disorder [Unknown]

NARRATIVE: CASE EVENT DATE: 20150414
